FAERS Safety Report 4363216-9 (Version None)
Quarter: 2004Q2

REPORT INFORMATION
  Report Type: 
  Country: None (occurrence: None)
  Receive Date: 20040517
  Receipt Date: 20040206
  Transmission Date: 20050107
  Serious: No
  Sender: FDA-Public Use
  Company Number: S04-USA-00802-01

PATIENT
  Age: 71 Year
  Sex: Female

DRUGS (9)
  1. NAMENDA [Suspect]
     Indication: DEMENTIA ALZHEIMER'S TYPE
     Dosage: 10 MG QD PO
     Route: 048
     Dates: start: 20040101, end: 20040101
  2. NAMENDA [Suspect]
     Indication: DEMENTIA ALZHEIMER'S TYPE
     Dosage: 10 MG BID PO
     Route: 048
     Dates: start: 20040101
  3. NAMENDA [Suspect]
     Indication: DEMENTIA ALZHEIMER'S TYPE
     Dosage: 5 MG QD PO
     Route: 048
     Dates: start: 20040109, end: 20040101
  4. ARICEPT [Concomitant]
  5. ZOLOFT (SERTRALINE HYDROCHLIORIDE) [Concomitant]
  6. FOSAMAX (ALENDRONATE ODIUM) [Concomitant]
  7. SYNTHROID [Concomitant]
  8. VIOXX [Concomitant]
  9. LIPITOR [Concomitant]

REACTIONS (1)
  - TREMOR [None]
